FAERS Safety Report 8486612-7 (Version None)
Quarter: 2012Q3

REPORT INFORMATION
  Report Type: 
  Country: None (occurrence: None)
  Receive Date: 20120703
  Receipt Date: 20120621
  Transmission Date: 20120928
  Serious: Yes (Hospitalization, Other)
  Sender: FDA-Public Use
  Company Number: DK-ELI_LILLY_AND_COMPANY-DK201206008569

PATIENT
  Sex: Female

DRUGS (3)
  1. CONTRACEPTIVES [Concomitant]
  2. OLANZAPINE [Suspect]
     Dosage: 210 MG, MONTHLY (1/M)
     Route: 030
  3. OLANZAPINE [Suspect]
     Indication: SCHIZOPHRENIA
     Dosage: 210 MG, OTHER
     Route: 030
     Dates: start: 20110301

REACTIONS (11)
  - WEIGHT INCREASED [None]
  - STARVATION [None]
  - OEDEMA PERIPHERAL [None]
  - UNDERDOSE [None]
  - LIBIDO DECREASED [None]
  - FLUID IMBALANCE [None]
  - FEMALE ORGASMIC DISORDER [None]
  - GENERAL PHYSICAL CONDITION ABNORMAL [None]
  - MENSTRUATION IRREGULAR [None]
  - SEDATION [None]
  - HOSPITALISATION [None]
